FAERS Safety Report 8822732 (Version 4)
Quarter: 2013Q2

REPORT INFORMATION
  Report Type: Report from Study
  Country: FR (occurrence: FR)
  Receive Date: 20121003
  Receipt Date: 20130530
  Transmission Date: 20140414
  Serious: No
  Sender: FDA-Public Use
  Company Number: FR-ROCHE-1122030

PATIENT
  Age: 51 Year
  Sex: Male

DRUGS (9)
  1. TOCILIZUMAB [Suspect]
     Indication: RHEUMATOID ARTHRITIS
     Route: 050
     Dates: start: 20120131
  2. TOCILIZUMAB [Suspect]
     Route: 050
     Dates: start: 20120529
  3. TOCILIZUMAB [Suspect]
     Route: 050
     Dates: start: 20120626
  4. TOCILIZUMAB [Suspect]
     Route: 050
     Dates: start: 20120730
  5. TOCILIZUMAB [Suspect]
     Route: 050
     Dates: start: 20120828
  6. CORTANCYL [Concomitant]
     Indication: RHEUMATOID ARTHRITIS
     Route: 048
  7. METOJECT [Concomitant]
     Indication: RHEUMATOID ARTHRITIS
     Route: 058
  8. NOVOMIX 30 [Concomitant]
     Indication: DIABETES MELLITUS
     Route: 058
  9. METHOTREXATE [Concomitant]

REACTIONS (2)
  - Lung disorder [Recovered/Resolved]
  - Urinary tract infection [Recovered/Resolved with Sequelae]
